FAERS Safety Report 7831349-8 (Version None)
Quarter: 2011Q4

REPORT INFORMATION
  Report Type: 
  Country: None (occurrence: None)
  Receive Date: 20111021
  Receipt Date: 20111014
  Transmission Date: 20120403
  Serious: Yes (Death)
  Sender: FDA-Public Use
  Company Number: CA-ROCHE-1004662

PATIENT
  Sex: Female
  Weight: 78.088 kg

DRUGS (7)
  1. EFFEXOR [Concomitant]
  2. ACTEMRA [Suspect]
     Indication: RHEUMATOID ARTHRITIS
     Route: 042
     Dates: start: 20110714, end: 20110908
  3. MORPHINE [Concomitant]
  4. PREDNISONE [Concomitant]
  5. APO-NADOL [Concomitant]
  6. NEXIUM [Concomitant]
  7. ACTONEL [Concomitant]

REACTIONS (1)
  - DEATH [None]
